FAERS Safety Report 9850229 (Version 1)
Quarter: 2013Q4

REPORT INFORMATION
  Report Type: Spontaneous
  Country: US (occurrence: None)
  Receive Date: 20131226
  Receipt Date: 20131226
  Transmission Date: 20140711
  Serious: Yes (Hospitalization, Other)
  Sender: FDA-Public Use
  Company Number: PHEH2013US012851

PATIENT
  Age: 69 Year
  Sex: Female
  Weight: 103.8 kg

DRUGS (1)
  1. SANDOSTATIN LAR DEPOT [Suspect]
     Indication: ACROMEGALY
     Dosage: 30 MG, EVERY 4 WEEKS, INTRAMUSCULAR
     Route: 030
     Dates: start: 20121012, end: 20130611

REACTIONS (1)
  - Renal failure [None]
